FAERS Safety Report 9243083 (Version 1)
Quarter: 2013Q2

REPORT INFORMATION
  Report Type: Spontaneous
  Country: FI (occurrence: FI)
  Receive Date: 20130419
  Receipt Date: 20130419
  Transmission Date: 20140414
  Serious: Yes (Other)
  Sender: FDA-Public Use
  Company Number: FI-ELI_LILLY_AND_COMPANY-FI201304003356

PATIENT
  Sex: Male

DRUGS (5)
  1. FORSTEO [Suspect]
     Indication: OSTEOPOROSIS
     Dosage: 20 UG, QD
     Dates: start: 201111
  2. TENOX [Concomitant]
     Indication: SLEEP DISORDER
     Dosage: 20 MG, UNK
  3. REMERON [Concomitant]
     Dosage: 30 MG, UNK
  4. ALPROX [Concomitant]
     Dosage: 0.5 MG, UNK
  5. CALCICHEW D3 [Concomitant]
     Indication: MEDICAL DIET

REACTIONS (4)
  - Intestinal strangulation [Recovered/Resolved]
  - Epilepsy [Not Recovered/Not Resolved]
  - Fracture pain [Not Recovered/Not Resolved]
  - Nausea [Not Recovered/Not Resolved]
